FAERS Safety Report 14363835 (Version 1)
Quarter: 2018Q1

REPORT INFORMATION
  Report Type: Spontaneous
  Country: IL (occurrence: IL)
  Receive Date: 20180108
  Receipt Date: 20180108
  Transmission Date: 20180509
  Serious: Yes (Death, Hospitalization)
  Sender: FDA-Public Use
  Company Number: IL-EISAI MEDICAL RESEARCH-EC-2018-034897

PATIENT
  Age: 83 Year
  Sex: Female

DRUGS (1)
  1. LENVIMA [Suspect]
     Active Substance: LENVATINIB
     Indication: THYROID CANCER
     Dosage: UNKNOWN
     Route: 048
     Dates: start: 20171120, end: 201712

REACTIONS (3)
  - Malignant neoplasm progression [Fatal]
  - Hypertension [Unknown]
  - Infection [Recovered/Resolved]

NARRATIVE: CASE EVENT DATE: 201712
